FAERS Safety Report 8386511-5 (Version None)
Quarter: 2012Q2

REPORT INFORMATION
  Report Type: 
  Country: None (occurrence: None)
  Receive Date: 20120525
  Receipt Date: 20120518
  Transmission Date: 20120825
  Serious: Yes (Hospitalization)
  Sender: FDA-Public Use
  Company Number: FR-SANOFI-AVENTIS-2012SA007905

PATIENT
  Age: 34 Year
  Sex: Female
  Weight: 55.6 kg

DRUGS (3)
  1. BLINDED THERAPY [Suspect]
     Indication: PULMONARY TUBERCULOSIS
     Route: 065
     Dates: start: 20120109
  2. RIFAMPICIN [Suspect]
     Indication: PULMONARY TUBERCULOSIS
     Route: 065
     Dates: start: 20120109
  3. BLINDED THERAPY [Suspect]
     Route: 065
     Dates: start: 20120109

REACTIONS (1)
  - PANNICULITIS [None]
